FAERS Safety Report 25342575 (Version 1)
Quarter: 2025Q2

REPORT INFORMATION
  Report Type: Spontaneous
  Country: US (occurrence: US)
  Receive Date: 20250521
  Receipt Date: 20250521
  Transmission Date: 20250716
  Serious: Yes (Other)
  Sender: CATALYST PHARMA
  Company Number: US-CATALYST PHARMACEUTICALS-US-CATA-25-00562

PATIENT
  Age: 7 Year
  Sex: Male
  Weight: 24.943 kg

DRUGS (6)
  1. AGAMREE [Suspect]
     Active Substance: VAMOROLONE
     Indication: Duchenne muscular dystrophy
     Route: 048
     Dates: start: 20240522
  2. AGAMREE [Suspect]
     Active Substance: VAMOROLONE
     Dosage: 2.5 ML BY MOUTH DAILY
     Route: 048
     Dates: start: 20250312, end: 20250404
  3. AGAMREE [Suspect]
     Active Substance: VAMOROLONE
     Dosage: 2.5 ML DAILY
     Route: 048
     Dates: start: 20250413
  4. FLOVENT HFA [Concomitant]
     Active Substance: FLUTICASONE PROPIONATE
     Indication: Asthma
     Dosage: 2 PUFFS TWICE DAILY
     Route: 055
  5. ALBUTEROL SULFATE [Concomitant]
     Active Substance: ALBUTEROL SULFATE
     Indication: Asthma
     Route: 055
  6. VITAMIN D3 [Concomitant]
     Active Substance: CHOLECALCIFEROL
     Indication: Bone disorder
     Dosage: 2000 IU DAILY
     Route: 048

REACTIONS (3)
  - Upper limb fracture [Recovering/Resolving]
  - Gastroenteritis viral [Recovered/Resolved]
  - Product dose omission issue [Recovered/Resolved]

NARRATIVE: CASE EVENT DATE: 20250324
